FAERS Safety Report 8819792 (Version 3)
Quarter: 2012Q4

REPORT INFORMATION
  Report Type: 
  Country: US (occurrence: US)
  Receive Date: 20121001
  Receipt Date: 20121023
  Transmission Date: 20130627
  Serious: No
  Sender: FDA-Public Use
  Company Number: US-ASTRAZENECA-2012SE73531

PATIENT
  Age: 33 Year
  Sex: Female

DRUGS (2)
  1. SYMBICORT PMDI [Suspect]
     Indication: ASTHMA
     Dosage: 160/45 MCG, TWO TIMES A DAY
     Route: 055
  2. NASONEX [Concomitant]
     Indication: ASTHMA

REACTIONS (5)
  - Asthma [Unknown]
  - Asthma [Unknown]
  - Activities of daily living impaired [Unknown]
  - Impaired work ability [Unknown]
  - Off label use [Unknown]
